FAERS Safety Report 4984172-6 (Version None)
Quarter: 2006Q2

REPORT INFORMATION
  Report Type: 
  Country: None (occurrence: None)
  Receive Date: 20060425
  Receipt Date: 20060425
  Transmission Date: 20061013
  Serious: Yes (Hospitalization)
  Sender: FDA-Public Use
  Company Number: None

PATIENT
  Age: 70 Year
  Sex: Male
  Weight: 80.9 kg

DRUGS (11)
  1. TAXOTERE [Suspect]
     Indication: LARYNGEAL CANCER
     Dosage: 30 MG/M2  IV
     Route: 042
     Dates: start: 20060410
  2. TAXOTERE [Suspect]
     Indication: LARYNGEAL CANCER
     Dosage: 30 MG/M2  IV
     Route: 042
     Dates: start: 20060419
  3. LONAFARNIB (SCH66336) [Suspect]
     Indication: LARYNGEAL CANCER
     Dosage: 100 MG BID, PO
     Route: 048
     Dates: start: 20060407, end: 20060415
  4. SIMVASTATIN [Concomitant]
  5. MG OXIDE [Concomitant]
  6. ATENOLOL [Concomitant]
  7. LOPERAMIDE [Concomitant]
  8. LEVOTHYROXINE SODIUM [Concomitant]
  9. PERCOCET [Concomitant]
  10. MORPHINE [Concomitant]
  11. PROMETHAZINE [Concomitant]

REACTIONS (1)
  - PNEUMONIA ASPIRATION [None]
